FAERS Safety Report 9243297 (Version 1)
Quarter: 2013Q2

REPORT INFORMATION
  Report Type: Spontaneous
  Country: US (occurrence: US)
  Receive Date: 20130419
  Receipt Date: 20130419
  Transmission Date: 20140414
  Serious: Yes (Other)
  Sender: FDA-Public Use
  Company Number: US-ABBOTT-13P-163-1076753-00

PATIENT
  Sex: 0

DRUGS (1)
  1. HUMIRA [Suspect]
     Indication: IRRITABLE BOWEL SYNDROME

REACTIONS (5)
  - Lymph node pain [Unknown]
  - Thrombocytopenia [Unknown]
  - Lymphadenopathy [Unknown]
  - Lymphadenopathy [Unknown]
  - Lymphoma [Unknown]
